FAERS Safety Report 4627714-2 (Version None)
Quarter: 2005Q2

REPORT INFORMATION
  Report Type: 
  Country: None (occurrence: None)
  Receive Date: 20050401
  Receipt Date: 20050316
  Transmission Date: 20051028
  Serious: Yes (Other)
  Sender: FDA-Public Use
  Company Number: DSA_25167_2004

PATIENT
  Age: 74 Year
  Sex: Male

DRUGS (4)
  1. TEVETEN [Suspect]
     Indication: HYPERTENSION
     Dosage: DF PO
     Route: 048
     Dates: start: 20030916, end: 20030929
  2. PANTALOC [Concomitant]
  3. VIOXX [Concomitant]
  4. HYTRIN [Concomitant]

REACTIONS (2)
  - OROPHARYNGEAL SWELLING [None]
  - SWOLLEN TONGUE [None]
